FAERS Safety Report 6272099-1 (Version None)
Quarter: 2009Q3

REPORT INFORMATION
  Report Type: 
  Country: None (occurrence: None)
  Receive Date: 20090717
  Receipt Date: 20090709
  Transmission Date: 20100115
  Serious: Yes (Hospitalization)
  Sender: FDA-Public Use
  Company Number: B0582910A

PATIENT
  Age: 74 Year
  Sex: Male
  Weight: 75 kg

DRUGS (5)
  1. ACYCLOVIR [Suspect]
     Route: 048
     Dates: start: 20090618, end: 20090622
  2. METHOTREXATE [Concomitant]
  3. LANSOPRAZOLE [Concomitant]
  4. NAPROXEN [Concomitant]
  5. CODEINE [Concomitant]

REACTIONS (1)
  - CONFUSIONAL STATE [None]
